FAERS Safety Report 4918794-5 (Version None)
Quarter: 2006Q1

REPORT INFORMATION
  Report Type: 
  Country: None (occurrence: None)
  Receive Date: 20060216
  Receipt Date: 20060106
  Transmission Date: 20060701
  Serious: Yes (Hospitalization)
  Sender: FDA-Public Use
  Company Number: 8014203

PATIENT
  Age: 21 Year
  Sex: Male
  Weight: 81.5 kg

DRUGS (1)
  1. DELSYM [Suspect]
     Dosage: PO
     Route: 048
     Dates: start: 20051206, end: 20051206

REACTIONS (1)
  - INTENTIONAL OVERDOSE [None]
